FAERS Safety Report 8789259 (Version 1)
Quarter: 2012Q4

REPORT INFORMATION
  Report Type: Spontaneous
  Country: US (occurrence: None)
  Receive Date: 20120910
  Receipt Date: 20120910
  Transmission Date: 20130627
  Serious: Yes (Life-Threatening, Hospitalization, Other)
  Sender: FDA-Public Use
  Company Number: None

PATIENT
  Age: 15 Year
  Sex: Male
  Weight: 89.36 kg

DRUGS (1)
  1. VANCOMYCIN [Suspect]

REACTIONS (5)
  - Renal failure acute [None]
  - Convulsion [None]
  - Rash [None]
  - Mental status changes [None]
  - Prescribed overdose [None]
